FAERS Safety Report 6236286-0 (Version None)
Quarter: 2009Q2

REPORT INFORMATION
  Report Type: 
  Country: None (occurrence: None)
  Receive Date: 20090619
  Receipt Date: 20090610
  Transmission Date: 20091009
  Serious: Yes (Other)
  Sender: FDA-Public Use
  Company Number: JP-PFIZER INC-2009226377

PATIENT
  Age: 68 Year

DRUGS (22)
  1. SLONNON [Suspect]
     Indication: HEPARIN-INDUCED THROMBOCYTOPENIA
     Dosage: 0.89 UG/KG, 1 IN 1 MIN
     Route: 042
     Dates: start: 20081201, end: 20081202
  2. SLONNON [Suspect]
     Dosage: 0.67 UG/KG, 1 IN 1 MIN
     Route: 042
     Dates: start: 20081202, end: 20081204
  3. SLONNON [Suspect]
     Dosage: 0.56 UG/KG, UNK
     Route: 042
     Dates: start: 20081204, end: 20081208
  4. SLONNON [Suspect]
     Dosage: 0.67 UG/KG, 1 IN 1 MIN
     Route: 042
     Dates: start: 20081208, end: 20081211
  5. SLONNON [Suspect]
     Dosage: 0.78 UG/KG, 1 IN 1 MIN
     Route: 042
     Dates: start: 20081211, end: 20081216
  6. SLONNON [Suspect]
     Dosage: 0.89 UG/KG, 1 IN 1 MIN
     Route: 042
     Dates: start: 20081216, end: 20081218
  7. SLONNON [Suspect]
     Dosage: 0.67 UG/KG, 1 IN 1 MIN
     Route: 042
     Dates: start: 20081218, end: 20081220
  8. SLONNON [Suspect]
     Dosage: 0.89 UG/KG, 1 IN 1 DAY
     Route: 042
     Dates: start: 20081220, end: 20081225
  9. SLONNON [Suspect]
     Dosage: 1.11 UG/KG, 1 IN 1 MIN
     Route: 042
     Dates: start: 20081225, end: 20090122
  10. SLONNON [Suspect]
     Dosage: 0.89 UG/KG, 1 IN 1 MIN
     Route: 042
     Dates: start: 20090122, end: 20090203
  11. SLONNON [Suspect]
     Dosage: 0.67 UG/KG, 1 IN 1 MIN
     Route: 042
     Dates: start: 20090203, end: 20090204
  12. SLONNON [Suspect]
     Dosage: 0.44 UG/KG, 1 IN 1 MIN
     Route: 042
     Dates: start: 20090204, end: 20090210
  13. HEPARIN [Concomitant]
     Dosage: UNK
     Dates: start: 20081027
  14. WARFARIN [Concomitant]
     Dosage: 2 MG, UNK
     Route: 048
     Dates: start: 20090116, end: 20090122
  15. WARFARIN [Concomitant]
     Dosage: 2.5 MG, UNK
     Route: 048
     Dates: start: 20090122, end: 20090125
  16. WARFARIN [Concomitant]
     Dosage: 2 MG, UNK
     Route: 048
     Dates: start: 20090126
  17. VANCOMYCIN [Concomitant]
     Dosage: 0.5 G, ALTERNATE DAY
     Route: 042
     Dates: start: 20081129, end: 20081217
  18. GASTER [Concomitant]
     Indication: PROPHYLAXIS
     Dosage: 10 MG, UNK
     Route: 042
     Dates: start: 20081218, end: 20090127
  19. FAMOTIDINE [Concomitant]
     Dosage: 10 MG, UNK
     Route: 048
     Dates: start: 20090128
  20. TAKEPRON [Concomitant]
     Dosage: 60 MG, UNK
     Route: 042
     Dates: start: 20081204, end: 20081218
  21. ELCITONIN [Concomitant]
     Dosage: 80 IU, UNK
     Dates: start: 20090119, end: 20090223
  22. BAKTAR [Concomitant]
     Indication: PROPHYLAXIS
     Dosage: 2 DF, TWO DAYS A WEEK
     Route: 048
     Dates: start: 20090122

REACTIONS (1)
  - HEPATIC ENZYME INCREASED [None]
